FAERS Safety Report 22234820 (Version 3)
Quarter: 2025Q2

REPORT INFORMATION
  Report Type: Spontaneous
  Country: NL (occurrence: NL)
  Receive Date: 20230420
  Receipt Date: 20250610
  Transmission Date: 20250717
  Serious: Yes (Hospitalization)
  Sender: MYLAN
  Company Number: NL-Accord-306926

PATIENT
  Age: 9 Year
  Sex: Male

DRUGS (7)
  1. ARIPIPRAZOLE [Suspect]
     Active Substance: ARIPIPRAZOLE
     Indication: Product used for unknown indication
     Dosage: 2 MILLIGRAM, QD
     Dates: start: 20230202, end: 20230227
  2. OXYBUTYNIN [Suspect]
     Active Substance: OXYBUTYNIN
     Indication: Product used for unknown indication
     Dosage: 12.8 MILLIGRAM, QD
     Dates: start: 20230219, end: 20230227
  3. ACETAMINOPHEN [Suspect]
     Active Substance: ACETAMINOPHEN
     Indication: Product used for unknown indication
     Dosage: 1500 MILLIGRAM, QD
     Dates: start: 20230215, end: 20230227
  4. METOCLOPRAMIDE [Suspect]
     Active Substance: METOCLOPRAMIDE
     Indication: Product used for unknown indication
     Dosage: 12 MILLIGRAM, QD
     Dates: start: 20230207, end: 20230227
  5. CRIZOTINIB [Suspect]
     Active Substance: CRIZOTINIB
     Indication: Product used for unknown indication
  6. CRIZOTINIB [Suspect]
     Active Substance: CRIZOTINIB
     Dosage: 600 MILLIGRAM, QD
     Dates: start: 20230211, end: 20230226
  7. TRAMADOL [Suspect]
     Active Substance: TRAMADOL
     Indication: Product used for unknown indication
     Dosage: 90 MILLIGRAM, QD
     Dates: start: 20230217, end: 20230227

REACTIONS (7)
  - Nausea [Not Recovered/Not Resolved]
  - Vomiting [Recovered/Resolved]
  - Abdominal pain [Unknown]
  - Lipase increased [Recovered/Resolved]
  - Amylase increased [Recovered/Resolved]
  - Product use in unapproved indication [Unknown]
  - Off label use [Unknown]

NARRATIVE: CASE EVENT DATE: 20230101
